FAERS Safety Report 8432544-X (Version None)
Quarter: 2012Q2

REPORT INFORMATION
  Report Type: 
  Country: None (occurrence: None)
  Receive Date: 20120613
  Receipt Date: 20120612
  Transmission Date: 20120825
  Serious: Yes (Hospitalization, Other)
  Sender: FDA-Public Use
  Company Number: US-BAYER-2012-049574

PATIENT
  Age: 72 Year
  Sex: Male

DRUGS (9)
  1. REMERON [Concomitant]
     Dosage: 30 MG, AT BEDTIME
     Route: 048
  2. ULTRAM [Concomitant]
     Dosage: 50 MG, Q4HOURS PRN
     Route: 048
  3. VASOTEC [Concomitant]
     Dosage: 10 MG, QD
     Route: 048
  4. NEXAVAR [Suspect]
     Indication: PRODUCT USED FOR UNKNOWN INDICATION
     Dosage: 400 MG, BID
     Route: 048
     Dates: start: 20120117
  5. MARINOL [Concomitant]
     Dosage: 2.5 MG, BID
     Route: 048
  6. VASOTEC [Concomitant]
     Dosage: 5 MG, QD
     Route: 048
  7. LOMOTIL [DIPHENOXYLATE HYDROCHLORIDE] [Concomitant]
     Dosage: 2.5-0.025 MG/5ML Q4HOURS, PRN
     Route: 048
  8. ZITHROMAX [Concomitant]
     Dosage: 250 MG, PRN
     Route: 048
  9. MORPHINE SULFATE [Concomitant]
     Dosage: 30 MG, QD
     Route: 048

REACTIONS (5)
  - HYPERKALAEMIA [None]
  - DIARRHOEA [None]
  - ADVERSE EVENT [None]
  - HEPATIC NEOPLASM MALIGNANT [None]
  - NEOPLASM PROGRESSION [None]
